FAERS Safety Report 4906173-6 (Version None)
Quarter: 2006Q1

REPORT INFORMATION
  Report Type: 
  Country: None (occurrence: None)
  Receive Date: 20060207
  Receipt Date: 20060125
  Transmission Date: 20060701
  Serious: Yes (Hospitalization)
  Sender: FDA-Public Use
  Company Number: 2006013779

PATIENT
  Age: 94 Year
  Sex: Female

DRUGS (5)
  1. NIFEDIPINE [Suspect]
     Indication: ILL-DEFINED DISORDER
     Dosage: ORAL
     Route: 048
     Dates: end: 20051027
  2. LOPRESSOR [Suspect]
     Indication: ILL-DEFINED DISORDER
     Dosage: 100 MG, ORAL
     Route: 048
     Dates: end: 20051027
  3. COVERSUM (PERINDOPRIL) [Suspect]
     Indication: ILL-DEFINED DISORDER
     Dosage: 8 MG, ORAL
     Route: 048
     Dates: end: 20051027
  4. PERINDOPRIL (PERINDOPRIL) [Concomitant]
  5. CLOPIDOGREL BISULFATE [Concomitant]

REACTIONS (3)
  - BRADYCARDIA [None]
  - SOMNOLENCE [None]
  - SYNCOPE [None]
